FAERS Safety Report 23307244 (Version 3)
Quarter: 2025Q1

REPORT INFORMATION
  Report Type: Report from Study
  Country: CA (occurrence: CA)
  Receive Date: 20231218
  Receipt Date: 20250120
  Transmission Date: 20250408
  Serious: No
  Sender: ROCHE
  Company Number: CA-ROCHE-3477072

PATIENT
  Age: 62 Year
  Sex: Male

DRUGS (2)
  1. OCREVUS [Suspect]
     Active Substance: OCRELIZUMAB
     Indication: Relapsing-remitting multiple sclerosis
     Dosage: 300 MG AT DAY 0 AND 14, THEN 600 MG EVERY 6 MONTH.
     Route: 042
     Dates: start: 20230616
  2. DIPHENHYDRAMINE [Concomitant]
     Active Substance: DIPHENHYDRAMINE
     Route: 065

REACTIONS (3)
  - SARS-CoV-2 test positive [Unknown]
  - Infusion related reaction [Recovered/Resolved]
  - Off label use [Unknown]

NARRATIVE: CASE EVENT DATE: 20231213
